FAERS Safety Report 17366678 (Version 1)
Quarter: 2020Q1

REPORT INFORMATION
  Report Type: Spontaneous
  Country: NL (occurrence: NL)
  Receive Date: 20200204
  Receipt Date: 20200204
  Transmission Date: 20200409
  Serious: Yes (Other)
  Sender: FDA-Public Use
  Company Number: NL-MYLANLABS-2020M1012650

PATIENT
  Sex: Male
  Weight: 120 kg

DRUGS (1)
  1. AMLODIPINE [Suspect]
     Active Substance: AMLODIPINE BESYLATE
     Indication: HYPERTENSION
     Dosage: TABLET, 5 MG (MILLIGRAM), 1 KEER PER DAG, 1
     Dates: start: 201201

REACTIONS (2)
  - Peripheral swelling [Not Recovered/Not Resolved]
  - Erectile dysfunction [Not Recovered/Not Resolved]
